FAERS Safety Report 6537864-1 (Version None)
Quarter: 2010Q1

REPORT INFORMATION
  Report Type: 
  Country: None (occurrence: None)
  Receive Date: 20100112
  Receipt Date: 20100112
  Transmission Date: 20100710
  Serious: No
  Sender: FDA-Public Use
  Company Number: None

PATIENT
  Sex: Female
  Weight: 62.4 kg

DRUGS (1)
  1. PERCOCET [Suspect]
     Dosage: 10/325 MG 1.5 TAB QID PRN PA ORAL
     Route: 048

REACTIONS (3)
  - DRUG INEFFECTIVE [None]
  - DRUG INTOLERANCE [None]
  - GASTROINTESTINAL DISORDER [None]
